FAERS Safety Report 9708256 (Version 2)
Quarter: 2014Q1

REPORT INFORMATION
  Report Type: Spontaneous
  Country: US (occurrence: US)
  Receive Date: 20131125
  Receipt Date: 20140124
  Transmission Date: 20141002
  Serious: No
  Sender: FDA-Public Use
  Company Number: US-GILEAD-2013-0088395

PATIENT
  Sex: Female

DRUGS (4)
  1. LETAIRIS [Suspect]
     Indication: PULMONARY HYPERTENSION
     Dosage: 10 MG, QD
     Route: 048
     Dates: start: 20130824
  2. LETAIRIS [Suspect]
     Indication: DRUG THERAPY
  3. ADCIRCA [Concomitant]
  4. TYVASO [Concomitant]

REACTIONS (1)
  - Bronchitis [Unknown]
